FAERS Safety Report 8507448-4 (Version None)
Quarter: 2012Q3

REPORT INFORMATION
  Report Type: 
  Country: None (occurrence: None)
  Receive Date: 20120712
  Receipt Date: 20120618
  Transmission Date: 20120928
  Serious: Yes (Other)
  Sender: FDA-Public Use
  Company Number: PHHY2012EC053959

PATIENT
  Sex: Female

DRUGS (1)
  1. EXELON [Suspect]
     Indication: DEMENTIA ALZHEIMER'S TYPE
     Dosage: 6 DF (18 MG), DAILY (3 CAP IN THE MORING AND 3 CAP IN THE AFTERNOON)
     Route: 048
     Dates: start: 20120301

REACTIONS (2)
  - ABDOMINAL PAIN UPPER [None]
  - HYPERTENSIVE CRISIS [None]
